FAERS Safety Report 4639519-7 (Version None)
Quarter: 2005Q2

REPORT INFORMATION
  Report Type: 
  Country: None (occurrence: None)
  Receive Date: 20050418
  Receipt Date: 20050406
  Transmission Date: 20051028
  Serious: Yes (Life-Threatening)
  Sender: FDA-Public Use
  Company Number: 2005056436

PATIENT
  Age: 74 Year
  Sex: Female
  Weight: 68 kg

DRUGS (10)
  1. SPIRONOLACTONE [Suspect]
     Indication: CARDIAC FAILURE CONGESTIVE
     Dosage: 25 MG (DAILY), ORAL
     Route: 048
     Dates: end: 20040324
  2. HEPARIN-FRACTION, SODIUM SALT (HEPARIN-FRACTION, SODIUM SALT) [Suspect]
     Indication: CEREBROVASCULAR DISORDER
     Dosage: 40 MG (DAILY), SUBCUTANEOUS
     Route: 058
     Dates: start: 20040315, end: 20040323
  3. WARFARIN SODIUM [Suspect]
     Indication: CEREBROVASCULAR DISORDER
     Dosage: 3 MG (DAILY), ORAL
     Route: 048
  4. RAMIPRIL [Suspect]
     Indication: CARDIAC FAILURE CONGESTIVE
     Dosage: 5 MG (DAILY), ORAL
     Route: 048
  5. MELOXICAM [Suspect]
     Indication: ILL-DEFINED DISORDER
     Dosage: 15 MG (DAILY), ORAL
     Route: 048
     Dates: end: 20040315
  6. ASPIRIN [Suspect]
     Indication: PROPHYLAXIS
     Dosage: 100 MG (DAILY), ORAL
     Route: 048
  7. QUININE SULFATE (QUININE SULFATE) [Concomitant]
  8. ISOSORBIDE MONONITRATE [Concomitant]
  9. NICORANDIL (NICORANDIL) [Concomitant]
  10. AMOXICILLIN TRIHYDRATE [Concomitant]

REACTIONS (4)
  - CONTUSION [None]
  - HAEMATOMA [None]
  - HYPERKALAEMIA [None]
  - RENAL IMPAIRMENT [None]
